FAERS Safety Report 10208497 (Version 2)
Quarter: 2018Q3

REPORT INFORMATION
  Report Type: Report from Study
  Country: JP (occurrence: JP)
  Receive Date: 20140530
  Receipt Date: 20180920
  Transmission Date: 20181010
  Serious: Yes (Hospitalization, Other)
  Sender: FDA-Public Use
  Company Number: JP-GLAXOSMITHKLINE-B0985219A

PATIENT
  Age: 43 Year
  Sex: Female

DRUGS (9)
  1. SUKARNASE [Concomitant]
     Indication: MAJOR DEPRESSION
     Route: 048
  2. HALRACK [Concomitant]
     Active Substance: TRIAZOLAM
     Indication: MAJOR DEPRESSION
     Route: 048
  3. FAMOTIDINE. [Concomitant]
     Active Substance: FAMOTIDINE
     Dosage: 10 MG, BID
     Route: 048
  4. LAMOTRIGINE. [Suspect]
     Active Substance: LAMOTRIGINE
     Indication: BIPOLAR II DISORDER
     Dosage: 25 MG, QD
     Route: 048
     Dates: start: 20121105, end: 20121122
  5. ETISEDAN [Concomitant]
     Active Substance: ETIZOLAM
     Indication: MAJOR DEPRESSION
     Dosage: 1 MG, PRN
     Route: 048
  6. ZYPREXA [Concomitant]
     Active Substance: OLANZAPINE
     Indication: MANIA
  7. ZYPREXA [Concomitant]
     Active Substance: OLANZAPINE
     Indication: MAJOR DEPRESSION
     Route: 048
  8. SENNOSIDE [Concomitant]
     Active Substance: SENNOSIDES
     Dosage: 12 MG, QD
     Route: 048
  9. DALMATE [Concomitant]
     Active Substance: FLURAZEPAM HYDROCHLORIDE
     Indication: MAJOR DEPRESSION
     Route: 048

REACTIONS (4)
  - Conjunctival hyperaemia [Recovered/Resolved]
  - Pyrexia [Recovered/Resolved]
  - Drug eruption [Unknown]
  - Rash [Recovered/Resolved]

NARRATIVE: CASE EVENT DATE: 20121116
